FAERS Safety Report 12292987 (Version 1)
Quarter: 2016Q2

REPORT INFORMATION
  Report Type: Spontaneous
  Country: US (occurrence: US)
  Receive Date: 20160421
  Receipt Date: 20160421
  Transmission Date: 20160815
  Serious: No
  Sender: FDA-Public Use
  Company Number: GXBR2016US001073

PATIENT
  Sex: Female

DRUGS (1)
  1. AMOXICILLIN AND CLAVULANATE POTASSIUM TABLETS USP [Suspect]
     Active Substance: AMOXICILLIN\CLAVULANATE POTASSIUM
     Indication: ANIMAL BITE
     Dosage: 875MG AMOXICILLIN AND 125MG CLAVULANATE, BID
     Route: 048
     Dates: start: 20160304, end: 20160318

REACTIONS (4)
  - Headache [Recovered/Resolved]
  - Ageusia [Not Recovered/Not Resolved]
  - Diarrhoea [Recovered/Resolved]
  - Anosmia [Not Recovered/Not Resolved]

NARRATIVE: CASE EVENT DATE: 20160311
